FAERS Safety Report 9541521 (Version 1)
Quarter: 2013Q3

REPORT INFORMATION
  Report Type: Spontaneous
  Country: US (occurrence: None)
  Receive Date: 20130919
  Receipt Date: 20130919
  Transmission Date: 20140515
  Serious: Yes (Hospitalization, Disabling)
  Sender: FDA-Public Use
  Company Number: None

PATIENT
  Age: 69 Year
  Sex: Female
  Weight: 81 kg

DRUGS (1)
  1. COLISTIMETHATE SODIUM [Suspect]
     Indication: PNEUMONIA PSEUDOMONAL
     Dosage: 130MG TID INTRAVENOUS
     Route: 042
     Dates: start: 20130717, end: 20130720

REACTIONS (2)
  - Renal impairment [None]
  - Dialysis [None]
